FAERS Safety Report 18754376 (Version 1)
Quarter: 2021Q1

REPORT INFORMATION
  Report Type: Report from Study
  Country: FR (occurrence: FR)
  Receive Date: 20210119
  Receipt Date: 20210119
  Transmission Date: 20210419
  Serious: Yes (Hospitalization)
  Sender: FDA-Public Use
  Company Number: FR-JNJFOC-20190613916

PATIENT
  Age: 18 Year
  Sex: Female
  Weight: 52 kg

DRUGS (13)
  1. SPASFON [Concomitant]
     Route: 065
     Dates: start: 20190311, end: 20190311
  2. SODIUM ALGINATE [Concomitant]
     Active Substance: SODIUM ALGINATE
     Indication: CROHN^S DISEASE
     Route: 065
     Dates: start: 201812
  3. PARACETAMOL [Concomitant]
     Active Substance: ACETAMINOPHEN
     Route: 065
     Dates: start: 200011
  4. ZOPICLONE [Concomitant]
     Active Substance: ZOPICLONE
     Route: 065
     Dates: start: 20181018
  5. TRAMADOL. [Concomitant]
     Active Substance: TRAMADOL
     Indication: CROHN^S DISEASE
     Route: 065
     Dates: start: 20190131
  6. SPASFON [Concomitant]
     Indication: CROHN^S DISEASE
     Route: 065
     Dates: start: 201810
  7. USTEKINUMAB [Suspect]
     Active Substance: USTEKINUMAB
     Indication: CROHN^S DISEASE
     Dosage: THE SUBJECT HAD RECEIVED THE LAST INJECTION ON 28?MAY?2019
     Route: 058
     Dates: start: 20190319
  8. LUDEAL [Suspect]
     Active Substance: ETHINYL ESTRADIOL\LEVONORGESTREL
     Indication: CONTRACEPTION
     Route: 065
     Dates: start: 20180926, end: 20190613
  9. RHUS TOXICODENDRON [Concomitant]
     Active Substance: TOXICODENDRON PUBESCENS LEAF
     Dates: start: 20190602
  10. KESTIN [Concomitant]
     Active Substance: EBASTINE
     Route: 065
     Dates: start: 201305
  11. LIDOCAINE. [Concomitant]
     Active Substance: LIDOCAINE
     Indication: PROPHYLAXIS
     Route: 065
     Dates: start: 200101
  12. SALBUTAMOL [Concomitant]
     Active Substance: ALBUTEROL
     Route: 065
     Dates: start: 200809
  13. ZOLOFT [Concomitant]
     Active Substance: SERTRALINE HYDROCHLORIDE
     Dates: start: 20190609

REACTIONS (1)
  - Migraine [Not Recovered/Not Resolved]

NARRATIVE: CASE EVENT DATE: 20190608
